FAERS Safety Report 14251907 (Version 1)
Quarter: 2017Q4

REPORT INFORMATION
  Report Type: Other
  Country: CA (occurrence: CA)
  Receive Date: 20171205
  Receipt Date: 20171205
  Transmission Date: 20180321
  Serious: Yes (Other)
  Sender: FDA-Public Use
  Company Number: CA-APOTEX-2017AP021831

PATIENT
  Age: 39 Year
  Sex: Female
  Weight: 64 kg

DRUGS (5)
  1. INFLIXIMAB [Suspect]
     Active Substance: INFLIXIMAB
     Indication: ANKYLOSING SPONDYLITIS
     Dosage: 300 MG, CYCLICAL
     Route: 042
  2. ACETAMINOPHEN TABLETS USP 325 MG [Suspect]
     Active Substance: ACETAMINOPHEN
     Indication: PREMEDICATION
     Dosage: 975 MG, UNK
     Route: 048
  3. GRAVOL [Suspect]
     Active Substance: DIMENHYDRINATE
     Indication: PREMEDICATION
     Dosage: 50 MG, UNK
     Route: 042
  4. BENADRYL [Suspect]
     Active Substance: DIPHENHYDRAMINE HYDROCHLORIDE
     Indication: PREMEDICATION
     Dosage: 50 MG, UNK
     Route: 042
  5. HYDROCORTISONE SODIUM SUCCINATE [Suspect]
     Active Substance: HYDROCORTISONE SODIUM SUCCINATE
     Indication: PREMEDICATION
     Dosage: 100 MG, UNK
     Route: 065

REACTIONS (9)
  - Musculoskeletal stiffness [Recovered/Resolved]
  - Blood pressure decreased [Recovered/Resolved]
  - Pain in extremity [Recovered/Resolved]
  - Drug hypersensitivity [Recovered/Resolved]
  - Somnolence [Recovered/Resolved]
  - Arthropathy [Recovered/Resolved]
  - Pain in jaw [Recovered/Resolved]
  - Insomnia [Recovered/Resolved]
  - Poor venous access [Recovered/Resolved]
